FAERS Safety Report 8632627 (Version 3)
Quarter: 2013Q2

REPORT INFORMATION
  Report Type: Report from Study
  Country: US (occurrence: US)
  Receive Date: 20120625
  Receipt Date: 20130620
  Transmission Date: 20140414
  Serious: Yes (Death, Hospitalization)
  Sender: FDA-Public Use
  Company Number: US-ELI_LILLY_AND_COMPANY-US201206005528

PATIENT
  Age: 77 Year
  Sex: Male

DRUGS (2)
  1. TERIPARATIDE [Suspect]
     Indication: OSTEOPOROSIS
     Dosage: UNK, QD
  2. TERIPARATIDE [Suspect]
     Dosage: UNK, QD

REACTIONS (2)
  - Death [Fatal]
  - Atrial flutter [Recovered/Resolved]
